FAERS Safety Report 12570021 (Version 1)
Quarter: 2016Q3

REPORT INFORMATION
  Report Type: Spontaneous
  Country: CA (occurrence: None)
  Receive Date: 20160718
  Receipt Date: 20160718
  Transmission Date: 20161109
  Serious: Yes (Hospitalization, Disabling)
  Sender: FDA-Public Use
  Company Number: None

PATIENT
  Age: 91 Year
  Sex: Female
  Weight: 85.73 kg

DRUGS (1)
  1. ELIQUIS [Suspect]
     Active Substance: APIXABAN
     Indication: DRUG THERAPY
     Route: 048
     Dates: start: 20160520, end: 20160614

REACTIONS (7)
  - Skin ulcer [None]
  - Rash [None]
  - Purpura [None]
  - Hypoaesthesia [None]
  - Contusion [None]
  - Peripheral swelling [None]
  - Nerve injury [None]

NARRATIVE: CASE EVENT DATE: 20160531
